FAERS Safety Report 9294907 (Version 1)
Quarter: 2013Q1

REPORT INFORMATION
  Report Type: Spontaneous
  Country: US (occurrence: None)
  Receive Date: 20121227
  Receipt Date: 20121227
  Transmission Date: 20140127
  Serious: No
  Sender: FDA-Public Use
  Company Number: PHEH2012US022052

PATIENT
  Age: 58 Year
  Sex: Female

DRUGS (2)
  1. AFINITOR [Suspect]
  2. AROMASIN (EXEMESTANE) [Concomitant]

REACTIONS (3)
  - Skin lesion [None]
  - Dry skin [None]
  - Pruritus [None]
